FAERS Safety Report 6069699-0 (Version None)
Quarter: 2009Q1

REPORT INFORMATION
  Report Type: 
  Country: None (occurrence: None)
  Receive Date: 20090209
  Receipt Date: 20090126
  Transmission Date: 20090719
  Serious: Yes (Death)
  Sender: FDA-Public Use
  Company Number: GB-TEVA-184963ISR

PATIENT
  Age: 80 Year
  Sex: Female

DRUGS (4)
  1. CLARITHROMYCIN [Suspect]
     Indication: RESPIRATORY TRACT INFECTION
     Route: 048
     Dates: start: 20080929, end: 20081005
  2. CLARITHROMYCIN [Suspect]
     Route: 042
     Dates: start: 20080925, end: 20080928
  3. AMOXICILLIN + CLAVULANATE POTASSIUM [Suspect]
     Indication: RESPIRATORY TRACT INFECTION
     Route: 048
     Dates: start: 20080929, end: 20081005
  4. CEFTRIAXONE [Suspect]
     Indication: RESPIRATORY TRACT INFECTION
     Route: 042
     Dates: start: 20080925, end: 20080928

REACTIONS (3)
  - BLOOD CREATININE INCREASED [None]
  - CLOSTRIDIUM DIFFICILE COLITIS [None]
  - RENAL FAILURE ACUTE [None]
